FAERS Safety Report 5841144-7 (Version None)
Quarter: 2008Q3

REPORT INFORMATION
  Report Type: 
  Country: None (occurrence: None)
  Receive Date: 20080807
  Receipt Date: 20080807
  Transmission Date: 20090109
  Serious: Yes (Other)
  Sender: FDA-Public Use
  Company Number: None

PATIENT
  Age: 47 Year
  Sex: Female
  Weight: 90.2658 kg

DRUGS (1)
  1. AMBIEN [Suspect]
     Indication: INSOMNIA
     Dosage: 1 TABLET NIGHLY AT BEDTIME PO
     Route: 048
     Dates: start: 20070801, end: 20080430

REACTIONS (6)
  - AGGRESSION [None]
  - AMNESIA [None]
  - EMOTIONAL DISTRESS [None]
  - EYE ROLLING [None]
  - IMPRISONMENT [None]
  - JOINT INJURY [None]
